FAERS Safety Report 21812378 (Version 1)
Quarter: 2022Q4

REPORT INFORMATION
  Report Type: Spontaneous
  Country: US (occurrence: None)
  Receive Date: 20221230
  Receipt Date: 20221230
  Transmission Date: 20230113
  Serious: No
  Sender: FDA-Public Use
  Company Number: None

PATIENT
  Sex: Female

DRUGS (1)
  1. ENBREL [Suspect]
     Active Substance: ETANERCEPT
     Dosage: OTHER FREQUENCY : OTHER;?
     Route: 058

REACTIONS (7)
  - Vertigo [None]
  - Neck pain [None]
  - Nausea [None]
  - Vomiting [None]
  - Tinnitus [None]
  - Labyrinthitis [None]
  - Deafness [None]
